FAERS Safety Report 7700561-0 (Version None)
Quarter: 2011Q3

REPORT INFORMATION
  Report Type: 
  Country: None (occurrence: None)
  Receive Date: 20110822
  Receipt Date: 20110811
  Transmission Date: 20111222
  Serious: Yes (Life-Threatening, Hospitalization, Other)
  Sender: FDA-Public Use
  Company Number: FR-NOVOPROD-331528

PATIENT

DRUGS (4)
  1. NOVORAPID [Suspect]
     Dosage: FROM 45 TO 50 IU
     Route: 058
  2. NOVORAPID [Suspect]
     Dosage: FROM 45 TO 50 IU
     Route: 058
  3. NOVORAPID [Suspect]
     Indication: TYPE 1 DIABETES MELLITUS
     Dosage: FROM 45 TO 50 IU
     Route: 058
  4. LANTUS [Concomitant]

REACTIONS (1)
  - DIABETIC KETOACIDOSIS [None]
